FAERS Safety Report 6767995-2 (Version None)
Quarter: 2010Q2

REPORT INFORMATION
  Report Type: 
  Country: None (occurrence: None)
  Receive Date: 20100614
  Receipt Date: 20100609
  Transmission Date: 20101027
  Serious: Yes (Hospitalization)
  Sender: FDA-Public Use
  Company Number: A0863158A

PATIENT
  Age: 62 Year
  Sex: Male
  Weight: 104.5 kg

DRUGS (16)
  1. AVANDIA [Suspect]
     Indication: DIABETES MELLITUS
     Dosage: 4MG TWICE PER DAY
     Route: 048
     Dates: start: 20010101, end: 20070101
  2. AVANDAMET [Suspect]
     Dosage: 1TAB TWICE PER DAY
     Route: 048
  3. LOPRESSOR [Concomitant]
  4. METFORMIN HCL [Concomitant]
  5. PROTONIX [Concomitant]
  6. TRAMADOL HCL [Concomitant]
  7. SKELAXIN [Concomitant]
  8. CRESTOR [Concomitant]
  9. DURAGESIC-100 [Concomitant]
  10. AVODART [Concomitant]
  11. VIAGRA [Concomitant]
  12. ZOLOFT [Concomitant]
  13. RITALIN [Concomitant]
  14. CARAFATE [Concomitant]
  15. FLOMAX [Concomitant]
  16. UNIVASC [Concomitant]

REACTIONS (3)
  - CARDIAC DISORDER [None]
  - CHEST PAIN [None]
  - CORONARY ARTERY OCCLUSION [None]
